FAERS Safety Report 23855733 (Version 1)
Quarter: 2024Q2

REPORT INFORMATION
  Report Type: Spontaneous
  Country: US (occurrence: US)
  Receive Date: 20240514
  Receipt Date: 20240514
  Transmission Date: 20240716
  Serious: Yes (Other)
  Sender: FDA-Public Use
  Company Number: US-009507513-2405USA003698

PATIENT
  Age: 66 Year
  Sex: Female

DRUGS (2)
  1. KEYTRUDA [Suspect]
     Active Substance: PEMBROLIZUMAB
     Indication: Endometrial cancer
  2. LENVATINIB MESYLATE [Suspect]
     Active Substance: LENVATINIB MESYLATE
     Indication: Endometrial cancer
     Dosage: FLUCTUATED DOSAGE STARTED WITH 12MG ONCE DAILY, INCREASED TO 16MG, DECREASED TO 8MG/12MG ALTERNATING
     Dates: start: 20231006, end: 20240501

REACTIONS (6)
  - Pneumonia viral [Unknown]
  - Drug-induced liver injury [Unknown]
  - Liver function test increased [Recovering/Resolving]
  - Product use issue [Unknown]
  - Product use issue [Unknown]
  - Product use issue [Unknown]

NARRATIVE: CASE EVENT DATE: 20231006
